FAERS Safety Report 19878878 (Version 1)
Quarter: 2021Q3

REPORT INFORMATION
  Report Type: Spontaneous
  Country: ES (occurrence: ES)
  Receive Date: 20210924
  Receipt Date: 20210924
  Transmission Date: 20211014
  Serious: Yes (Other)
  Sender: FDA-Public Use
  Company Number: ES-AUROBINDO-AUR-APL-2021-012750

PATIENT
  Age: 43 Year
  Sex: Female

DRUGS (3)
  1. ATENOLOL. [Suspect]
     Active Substance: ATENOLOL
     Indication: DEPRESSIVE SYMPTOM
     Dosage: 50 MILLIGRAM, DAILY (50 MG / DAY)
     Route: 065
  2. PAROXETINE FILM?COATED TABLET [Suspect]
     Active Substance: PAROXETINE
     Indication: DEPRESSIVE SYMPTOM
     Dosage: 20 MILLIGRAM, ONCE A DAY (20 MG, 1X/DAY)
     Route: 065
  3. SIMVASTATIN. [Suspect]
     Active Substance: SIMVASTATIN
     Indication: DEPRESSIVE SYMPTOM
     Dosage: 20 MILLIGRAM, DAILY (20 MG / DAY)
     Route: 065

REACTIONS (6)
  - Insomnia [Recovered/Resolved]
  - Anxiety [Recovered/Resolved]
  - Dystonia [Recovered/Resolved]
  - Nausea [Recovered/Resolved]
  - Drug withdrawal syndrome [Recovered/Resolved]
  - Muscle contractions involuntary [Recovered/Resolved]
